FAERS Safety Report 15036150 (Version 1)
Quarter: 2018Q2

REPORT INFORMATION
  Report Type: Spontaneous
  Country: ES (occurrence: ES)
  Receive Date: 20180620
  Receipt Date: 20180620
  Transmission Date: 20180711
  Serious: Yes (Hospitalization)
  Sender: FDA-Public Use
  Company Number: ES-JNJFOC-20180621975

PATIENT
  Age: 48 Year
  Sex: Female

DRUGS (2)
  1. METHOTREXATE. [Suspect]
     Active Substance: METHOTREXATE
     Indication: CROHN^S DISEASE
     Route: 048
  2. INFLIXIMAB, RECOMBINANT [Suspect]
     Active Substance: INFLIXIMAB
     Indication: CROHN^S DISEASE
     Route: 042

REACTIONS (6)
  - Cough [Recovered/Resolved]
  - General physical health deterioration [Unknown]
  - Pneumonia [Recovered/Resolved]
  - Off label use [Unknown]
  - Dyspnoea [Recovered/Resolved]
  - Product use in unapproved indication [Unknown]
